FAERS Safety Report 22186815 (Version 1)
Quarter: 2023Q2

REPORT INFORMATION
  Report Type: Spontaneous
  Country: CN (occurrence: CN)
  Receive Date: 20230407
  Receipt Date: 20230407
  Transmission Date: 20230722
  Serious: Yes (Hospitalization, Other)
  Sender: FDA-Public Use
  Company Number: CN-009507513-2304CHN001354

PATIENT
  Age: 62 Year
  Sex: Female

DRUGS (2)
  1. CILASTATIN SODIUM\IMIPENEM [Suspect]
     Active Substance: CILASTATIN SODIUM\IMIPENEM
     Indication: Pneumonia
     Dosage: 1 GRAM, Q8H
     Route: 041
     Dates: start: 20230322, end: 20230330
  2. SODIUM CHLORIDE [Concomitant]
     Active Substance: SODIUM CHLORIDE
     Dosage: 0.9%, 100 MILLILITER. Q8H
     Route: 041
     Dates: start: 20230322

REACTIONS (4)
  - Muscle twitching [Recovered/Resolved]
  - Muscle twitching [Recovering/Resolving]
  - Pneumonia [Unknown]
  - Respiratory failure [Unknown]

NARRATIVE: CASE EVENT DATE: 20230101
